FAERS Safety Report 7373700-1 (Version None)
Quarter: 2011Q1

REPORT INFORMATION
  Report Type: 
  Country: None (occurrence: None)
  Receive Date: 20110325
  Receipt Date: 20110310
  Transmission Date: 20110831
  Serious: Yes (Hospitalization)
  Sender: FDA-Public Use
  Company Number: PHHY2011FR22187

PATIENT
  Sex: Female

DRUGS (2)
  1. COTAREG [Suspect]
     Dosage: UNK UKN, UNK
     Route: 048
  2. VALDOXAN [Suspect]
     Dosage: 25 MG, UNK
     Route: 048

REACTIONS (2)
  - HYPONATRAEMIA [None]
  - DEHYDRATION [None]
